FAERS Safety Report 17577325 (Version 2)
Quarter: 2020Q2

REPORT INFORMATION
  Report Type: Spontaneous
  Country: US (occurrence: US)
  Receive Date: 20200324
  Receipt Date: 20200409
  Transmission Date: 20200713
  Serious: Yes (Hospitalization)
  Sender: FDA-Public Use
  Company Number: US-VERTEX PHARMACEUTICALS-2020-006470

PATIENT
  Sex: Female
  Weight: 45 kg

DRUGS (1)
  1. TRIKAFTA [Suspect]
     Active Substance: ELEXACAFTOR\IVACAFTOR\TEZACAFTOR
     Indication: CYSTIC FIBROSIS
     Dosage: 100MG ELEXACAFTOR/50 MG TEZACAFTOR/75 MG IVACAFTOR; 150 MG IVACAFTOR
     Route: 048
     Dates: start: 20191115

REACTIONS (3)
  - Pneumothorax spontaneous [Recovering/Resolving]
  - Cystic fibrosis [Not Recovered/Not Resolved]
  - Adrenal insufficiency [Recovering/Resolving]
